FAERS Safety Report 20502627 (Version 1)
Quarter: 2022Q1

REPORT INFORMATION
  Report Type: Spontaneous
  Country: JP (occurrence: JP)
  Receive Date: 20220222
  Receipt Date: 20220222
  Transmission Date: 20220423
  Serious: Yes (Hospitalization, Other)
  Sender: FDA-Public Use
  Company Number: JP-LUPIN PHARMACEUTICALS INC.-2022-02307

PATIENT
  Age: 68 Year
  Sex: Female

DRUGS (2)
  1. BETAMETHASONE [Suspect]
     Active Substance: BETAMETHASONE
     Indication: Brain oedema
     Dosage: UNK
     Route: 065
  2. DESMOPRESSIN [Concomitant]
     Active Substance: DESMOPRESSIN
     Indication: Polyuria
     Dosage: UNK
     Route: 045

REACTIONS (2)
  - Unmasking of previously unidentified disease [Recovering/Resolving]
  - Diabetes insipidus [Recovering/Resolving]
